FAERS Safety Report 24229816 (Version 2)
Quarter: 2024Q3

REPORT INFORMATION
  Report Type: Report from Study
  Country: CO (occurrence: CO)
  Receive Date: 20240820
  Receipt Date: 20240830
  Transmission Date: 20241016
  Serious: Yes (Other)
  Sender: VERITY PHARMACEUTICALS
  Company Number: CO-VER-202400006

PATIENT
  Age: 9 Year
  Sex: Female

DRUGS (2)
  1. TRIPTORELIN PAMOATE [Suspect]
     Active Substance: TRIPTORELIN PAMOATE
     Indication: Precocious puberty
     Dosage: POWDER AND SOLVENT FOR SUSPENSION FOR INJECTION
     Route: 058
  2. ACETAMINOPHEN [Concomitant]
     Active Substance: ACETAMINOPHEN
     Indication: Product used for unknown indication
     Dosage: 2000 MILLIGRAM(S) (500 MILLIGRAM(S), 1 IN 6 HOUR
     Route: 065

REACTIONS (1)
  - Dengue fever [Not Recovered/Not Resolved]

NARRATIVE: CASE EVENT DATE: 20240807
